FAERS Safety Report 7432016-5 (Version None)
Quarter: 2011Q2

REPORT INFORMATION
  Report Type: 
  Country: None (occurrence: None)
  Receive Date: 20110422
  Receipt Date: 20110330
  Transmission Date: 20111010
  Serious: No
  Sender: FDA-Public Use
  Company Number: ZA-JNJFOC-20110401166

PATIENT
  Age: 8 Year
  Sex: Female

DRUGS (2)
  1. ANTIBIOTIC NOS [Suspect]
     Indication: PRODUCT USED FOR UNKNOWN INDICATION
     Route: 065
  2. DURAGESIC [Suspect]
     Indication: PRODUCT USED FOR UNKNOWN INDICATION
     Route: 062

REACTIONS (3)
  - PRODUCT QUALITY ISSUE [None]
  - VOMITING [None]
  - NAUSEA [None]
